FAERS Safety Report 16982035 (Version 1)
Quarter: 2019Q4

REPORT INFORMATION
  Report Type: Spontaneous
  Country: US (occurrence: US)
  Receive Date: 20191101
  Receipt Date: 20191101
  Transmission Date: 20200122
  Serious: Yes (Other)
  Sender: FDA-Public Use
  Company Number: US-ALKEM LABORATORIES LIMITED-US-ALKEM-2019-09024

PATIENT
  Age: 96 Year
  Sex: Female

DRUGS (4)
  1. ROPIVACAINE. [Suspect]
     Active Substance: ROPIVACAINE HYDROCHLORIDE
     Dosage: 50 MILLIGRAM
     Route: 065
  2. LIDOCAINE. [Suspect]
     Active Substance: LIDOCAINE
     Dosage: 100 MILLIGRAM
     Route: 065
  3. ROPIVACAINE. [Suspect]
     Active Substance: ROPIVACAINE HYDROCHLORIDE
     Indication: ANAESTHESIA
     Dosage: 75 MILLIGRAM
     Route: 065
  4. LIDOCAINE. [Suspect]
     Active Substance: LIDOCAINE
     Indication: ANAESTHESIA
     Dosage: 150 MILLIGRAM
     Route: 065

REACTIONS (4)
  - Toxicity to various agents [Unknown]
  - Mental status changes [Unknown]
  - Haemodynamic instability [Unknown]
  - Seizure [Unknown]
